FAERS Safety Report 8034326-X (Version None)
Quarter: 2012Q1

REPORT INFORMATION
  Report Type: 
  Country: None (occurrence: None)
  Receive Date: 20120110
  Receipt Date: 20120105
  Transmission Date: 20120608
  Serious: Yes (Hospitalization, Other)
  Sender: FDA-Public Use
  Company Number: PHEH2012US000755

PATIENT
  Sex: Female

DRUGS (3)
  1. ZOLOFT [Concomitant]
  2. NEORAL [Suspect]
     Dosage: 100 MG 2QD
     Route: 048
  3. LOPRESSOR [Concomitant]

REACTIONS (5)
  - MALAISE [None]
  - BRONCHITIS [None]
  - HYPERSENSITIVITY [None]
  - NEPHROLITHIASIS [None]
  - MUSCULOSKELETAL PAIN [None]
